FAERS Safety Report 25007346 (Version 1)
Quarter: 2025Q1

REPORT INFORMATION
  Report Type: Spontaneous
  Country: JP (occurrence: JP)
  Receive Date: 20250225
  Receipt Date: 20250225
  Transmission Date: 20250409
  Serious: Yes (Death, Other)
  Sender: AMGEN
  Company Number: JP-BEH-2024189529

PATIENT
  Age: 73 Year
  Sex: Male

DRUGS (2)
  1. TAVNEOS [Suspect]
     Active Substance: AVACOPAN
     Indication: Microscopic polyangiitis
     Dosage: 60 MG, QD
     Route: 048
     Dates: start: 202409, end: 202412
  2. TAVNEOS [Suspect]
     Active Substance: AVACOPAN
     Route: 048
     Dates: start: 202412, end: 202412

REACTIONS (3)
  - Vanishing bile duct syndrome [Unknown]
  - Infection [Fatal]
  - Underdose [Unknown]

NARRATIVE: CASE EVENT DATE: 20240101
